FAERS Safety Report 9675277 (Version 1)
Quarter: 2013Q4

REPORT INFORMATION
  Report Type: Spontaneous
  Country: US (occurrence: US)
  Receive Date: 20131107
  Receipt Date: 20131107
  Transmission Date: 20140711
  Serious: No
  Sender: FDA-Public Use
  Company Number: US-PFIZER INC-2013314235

PATIENT
  Age: 88 Year
  Sex: Female

DRUGS (3)
  1. SULFAMETHOXAZOLE\TRIMETHOPRIM [Suspect]
     Dosage: UNK
  2. PROPANOLOL HCL [Suspect]
     Dosage: UNK
  3. METOPROLOL [Suspect]

REACTIONS (1)
  - Drug hypersensitivity [Unknown]
